FAERS Safety Report 4395279-9 (Version None)
Quarter: 2004Q3

REPORT INFORMATION
  Report Type: 
  Country: None (occurrence: None)
  Receive Date: 20040706
  Receipt Date: 20040622
  Transmission Date: 20050211
  Serious: Yes (Hospitalization)
  Sender: FDA-Public Use
  Company Number: 04P-056-0264753-00

PATIENT
  Sex: Male

DRUGS (3)
  1. DEPAKOTE [Suspect]
     Indication: SCHIZOPHRENIA
     Dosage: 2500 MG, 1 IN 1 D, ORAL
     Route: 048
     Dates: start: 20030101, end: 20030101
  2. CLOZAPINE [Concomitant]
  3. SIMVASTATIN [Concomitant]

REACTIONS (2)
  - DRUG WITHDRAWAL CONVULSIONS [None]
  - PARTIAL SEIZURES [None]
